FAERS Safety Report 6066824-2 (Version None)
Quarter: 2009Q1

REPORT INFORMATION
  Report Type: 
  Country: None (occurrence: None)
  Receive Date: 20090205
  Receipt Date: 20090127
  Transmission Date: 20090719
  Serious: Yes (Other)
  Sender: FDA-Public Use
  Company Number: GB-ELI_LILLY_AND_COMPANY-GB200901004924

PATIENT
  Age: 63 Year
  Sex: Female

DRUGS (2)
  1. HUMALOG [Suspect]
     Indication: TYPE 1 DIABETES MELLITUS
     Route: 058
     Dates: start: 20070101, end: 20080201
  2. THYROXINE [Concomitant]
     Dosage: 50 UG, UNK
     Route: 048

REACTIONS (3)
  - EMOTIONAL DISTRESS [None]
  - INFLAMMATION [None]
  - PRURITUS [None]
